FAERS Safety Report 8301529-6 (Version None)
Quarter: 2012Q2

REPORT INFORMATION
  Report Type: 
  Country: None (occurrence: None)
  Receive Date: 20120420
  Receipt Date: 20120412
  Transmission Date: 20120825
  Serious: Yes (Life-Threatening, Hospitalization)
  Sender: FDA-Public Use
  Company Number: FR-ROCHE-1059463

PATIENT
  Sex: Female

DRUGS (1)
  1. MABTHERA [Suspect]
     Indication: OPSOCLONUS MYOCLONUS
     Route: 042
     Dates: start: 20120312, end: 20120312

REACTIONS (5)
  - SOMNOLENCE [None]
  - HYPOTENSION [None]
  - PALLOR [None]
  - VOMITING [None]
  - BRADYCARDIA [None]
